FAERS Safety Report 7585617-8 (Version None)
Quarter: 2011Q3

REPORT INFORMATION
  Report Type: 
  Country: None (occurrence: None)
  Receive Date: 20110701
  Receipt Date: 20110617
  Transmission Date: 20111222
  Serious: Yes (Hospitalization, Other)
  Sender: FDA-Public Use
  Company Number: US-BAYER-201027991NA

PATIENT
  Age: 25 Year
  Sex: Female
  Weight: 68.027 kg

DRUGS (4)
  1. YAZ [Concomitant]
     Indication: ORAL CONTRACEPTION
  2. PREVACID [Concomitant]
     Dosage: 1 CAPSULE BEFORE MEALS AS NEEDED
     Route: 048
  3. YASMIN [Suspect]
     Dosage: UNK UNK, UNK
     Route: 048
     Dates: start: 20050101, end: 20070101
  4. FLAXSEED OIL [Concomitant]
     Dosage: 2-3 TABLETS DAILY
     Route: 048

REACTIONS (5)
  - ABDOMINAL PAIN [None]
  - BILIARY DYSKINESIA [None]
  - GALLBLADDER DISORDER [None]
  - DIARRHOEA [None]
  - NAUSEA [None]
